FAERS Safety Report 12425772 (Version 1)
Quarter: 2016Q2

REPORT INFORMATION
  Report Type: Spontaneous
  Country: GB (occurrence: GB)
  Receive Date: 20160601
  Receipt Date: 20160601
  Transmission Date: 20160815
  Serious: Yes (Disabling, Other)
  Sender: FDA-Public Use
  Company Number: GB-WATSON-2016-10849

PATIENT
  Age: 64 Year
  Sex: Female
  Weight: 58.96 kg

DRUGS (1)
  1. DOXYCYCLINE ACTAVIS [Suspect]
     Active Substance: DOXYCYCLINE
     Indication: SINUS DISORDER
     Dosage: 100 MG, UNK
     Route: 048
     Dates: start: 20160423

REACTIONS (2)
  - Photosensitivity reaction [Not Recovered/Not Resolved]
  - Pain [Not Recovered/Not Resolved]

NARRATIVE: CASE EVENT DATE: 20160508
